FAERS Safety Report 4283907-8 (Version None)
Quarter: 2004Q1

REPORT INFORMATION
  Report Type: 
  Country: None (occurrence: None)
  Receive Date: 20040130
  Receipt Date: 20040115
  Transmission Date: 20041129
  Serious: Yes (Other)
  Sender: FDA-Public Use
  Company Number: 2004-DE-00392GL

PATIENT
  Age: 52 Year
  Sex: Female

DRUGS (1)
  1. TELMISARTAN [Suspect]
     Indication: HYPERTENSION
     Dosage: 40 MG (NR), PO
     Route: 048
     Dates: start: 20010101

REACTIONS (5)
  - CYSTITIS [None]
  - HYPOTONIA [None]
  - PENIS DISORDER [None]
  - RESIDUAL URINE VOLUME [None]
  - URINARY INCONTINENCE [None]
